FAERS Safety Report 21161675 (Version 1)
Quarter: 2022Q3

REPORT INFORMATION
  Report Type: Spontaneous
  Country: US (occurrence: US)
  Receive Date: 20220802
  Receipt Date: 20220802
  Transmission Date: 20221027
  Serious: No
  Sender: FDA-Public Use
  Company Number: US-ARIS GLOBAL-POI1255202200206

PATIENT
  Sex: Male

DRUGS (1)
  1. UPNEEQ [Suspect]
     Active Substance: OXYMETAZOLINE HYDROCHLORIDE
     Indication: Eyelid ptosis
     Dosage: OU
     Route: 047
     Dates: start: 2022

REACTIONS (2)
  - Intentional dose omission [Not Recovered/Not Resolved]
  - Multiple use of single-use product [Not Recovered/Not Resolved]

NARRATIVE: CASE EVENT DATE: 20220101
